FAERS Safety Report 19797185 (Version 1)
Quarter: 2021Q3

REPORT INFORMATION
  Report Type: Spontaneous
  Country: US (occurrence: US)
  Receive Date: 20210905
  Receipt Date: 20210905
  Transmission Date: 20211014
  Serious: Yes (Other)
  Sender: FDA-Public Use
  Company Number: None

PATIENT
  Age: 11 Year
  Sex: Female
  Weight: 31.5 kg

DRUGS (2)
  1. QELBREE [Suspect]
     Active Substance: VILOXAZINE HYDROCHLORIDE
     Indication: ATTENTION DEFICIT HYPERACTIVITY DISORDER
     Dosage: ?          QUANTITY:1 CAPSULE(S);?
     Route: 048
     Dates: start: 20210904
  2. MELATONIN [Concomitant]
     Active Substance: MELATONIN

REACTIONS (6)
  - Lethargy [None]
  - Flat affect [None]
  - Vomiting [None]
  - Somnolence [None]
  - Nausea [None]
  - Sluggishness [None]

NARRATIVE: CASE EVENT DATE: 20210904
